FAERS Safety Report 16112286 (Version 1)
Quarter: 2019Q1

REPORT INFORMATION
  Report Type: Spontaneous
  Country: US (occurrence: US)
  Receive Date: 20190325
  Receipt Date: 20190325
  Transmission Date: 20190418
  Serious: No
  Sender: FDA-Public Use
  Company Number: US-BAYER-2019-054804

PATIENT
  Age: 68 Year
  Sex: Female

DRUGS (7)
  1. TYLENOL [Concomitant]
     Active Substance: ACETAMINOPHEN
  2. EQUATE [IBUPROFEN] [Concomitant]
     Dosage: UNK
  3. HEART HEALTH [Concomitant]
  4. BAYER ASPIRIN [Suspect]
     Active Substance: ASPIRIN
     Indication: ARTHRITIS
     Route: 048
  5. BAYER ASPIRIN [Suspect]
     Active Substance: ASPIRIN
     Indication: ARTHRITIS
     Dosage: 2 DF
     Route: 048
  6. ALEVE [Suspect]
     Active Substance: NAPROXEN SODIUM
     Indication: ARTHRITIS
     Dosage: 1 DF
     Route: 048
  7. BP (BLOOD PRESSURE) [Concomitant]
     Dosage: UNK

REACTIONS (2)
  - Drug ineffective [None]
  - Product use in unapproved indication [Unknown]
